FAERS Safety Report 6891833-0 (Version None)
Quarter: 2010Q3

REPORT INFORMATION
  Report Type: 
  Country: None (occurrence: None)
  Receive Date: 20100731
  Receipt Date: 20071012
  Transmission Date: 20110219
  Serious: Yes (Other)
  Sender: FDA-Public Use
  Company Number: US-PFIZER INC-2007084676

PATIENT
  Sex: Female

DRUGS (2)
  1. NORVASC [Suspect]
     Route: 048
     Dates: end: 20071001
  2. LASIX [Concomitant]

REACTIONS (14)
  - ANGINA PECTORIS [None]
  - ASTHENIA [None]
  - BACK PAIN [None]
  - DIASTOLIC DYSFUNCTION [None]
  - DYSPEPSIA [None]
  - FLUSHING [None]
  - GINGIVAL DISORDER [None]
  - HEART RATE INCREASED [None]
  - MUSCLE SPASMS [None]
  - NAUSEA [None]
  - OEDEMA PERIPHERAL [None]
  - THROAT IRRITATION [None]
  - ULCER [None]
  - WEIGHT DECREASED [None]
